FAERS Safety Report 8421043-7 (Version None)
Quarter: 2012Q2

REPORT INFORMATION
  Report Type: 
  Country: None (occurrence: None)
  Receive Date: 20120608
  Receipt Date: 20120604
  Transmission Date: 20120825
  Serious: Yes (Hospitalization, Other)
  Sender: FDA-Public Use
  Company Number: BR-US-EMD SERONO, INC.-7137585

PATIENT
  Sex: Male

DRUGS (9)
  1. REBIF [Suspect]
     Indication: RELAPSING-REMITTING MULTIPLE SCLEROSIS
     Dates: start: 20040602
  2. TAMARINE [Concomitant]
     Indication: PRODUCT USED FOR UNKNOWN INDICATION
  3. DOXASOSINE (DOXAZOSIN) [Concomitant]
     Indication: PRODUCT USED FOR UNKNOWN INDICATION
  4. RETINIC (RENITEC) [Concomitant]
     Indication: PRODUCT USED FOR UNKNOWN INDICATION
  5. PONDERA [Concomitant]
     Indication: PRODUCT USED FOR UNKNOWN INDICATION
  6. LUFTAL [Concomitant]
     Indication: PRODUCT USED FOR UNKNOWN INDICATION
  7. AVODART [Concomitant]
     Indication: PRODUCT USED FOR UNKNOWN INDICATION
  8. SINVALIT [Concomitant]
     Indication: PRODUCT USED FOR UNKNOWN INDICATION
  9. TROFENIL (TOFRANIL) [Concomitant]
     Indication: PRODUCT USED FOR UNKNOWN INDICATION

REACTIONS (2)
  - CEREBROVASCULAR ACCIDENT [None]
  - ANAEMIA [None]
